FAERS Safety Report 24992025 (Version 1)
Quarter: 2025Q1

REPORT INFORMATION
  Report Type: Spontaneous
  Country: IT (occurrence: IT)
  Receive Date: 20250220
  Receipt Date: 20250220
  Transmission Date: 20250408
  Serious: Yes (Other)
  Sender: ABBVIE
  Company Number: None

PATIENT
  Age: 56 Year
  Sex: Female
  Weight: 66 kg

DRUGS (1)
  1. SKYRIZI [Suspect]
     Active Substance: RISANKIZUMAB-RZAA
     Indication: Crohn^s disease
     Route: 058
     Dates: start: 20240125, end: 20240725

REACTIONS (2)
  - Leukopenia [Recovered/Resolved]
  - Microcytic anaemia [Recovered/Resolved]

NARRATIVE: CASE EVENT DATE: 20240914
